FAERS Safety Report 6578773-1 (Version None)
Quarter: 2010Q1

REPORT INFORMATION
  Report Type: 
  Country: None (occurrence: None)
  Receive Date: 20100202
  Receipt Date: 20100119
  Transmission Date: 20100710
  Serious: Yes (Hospitalization, Other)
  Sender: FDA-Public Use
  Company Number: CERZ-1001081

PATIENT
  Age: 63 Year
  Sex: Male
  Weight: 90 kg

DRUGS (6)
  1. CEREZYME [Suspect]
     Indication: GAUCHER'S DISEASE
     Dosage: 2000 U, INTRAVENOUS
     Route: 042
     Dates: start: 20090401
  2. PHENOBARBITAL TAB [Concomitant]
  3. GEMFIBROZIL [Concomitant]
  4. ALLOPURINOL [Concomitant]
  5. GLYBURIDE [Concomitant]
  6. LASIX [Concomitant]

REACTIONS (11)
  - ANTIBODY TEST POSITIVE [None]
  - BLOOD ALKALINE PHOSPHATASE INCREASED [None]
  - ERYTHEMA [None]
  - EYE ROLLING [None]
  - FLUSHING [None]
  - HAEMOGLOBIN DECREASED [None]
  - HYPOTENSION [None]
  - INFUSION RELATED REACTION [None]
  - PLATELET COUNT DECREASED [None]
  - PRURITUS [None]
  - WHITE BLOOD CELL COUNT DECREASED [None]
